FAERS Safety Report 8831877 (Version 2)
Quarter: 2012Q4

REPORT INFORMATION
  Report Type: Report from Study
  Country: GB (occurrence: GB)
  Receive Date: 20121009
  Receipt Date: 20121120
  Transmission Date: 20130627
  Serious: Yes (Death)
  Sender: FDA-Public Use
  Company Number: GB-ROCHE-1142886

PATIENT
  Sex: Female
  Weight: 92 kg

DRUGS (2)
  1. RITUXIMAB [Suspect]
     Indication: PRODUCT USED FOR UNKNOWN INDICATION
     Dosage: date of last dose prior to SAE 27/Mar/2012
     Route: 065
     Dates: start: 20120313
  2. METHOTREXATE [Concomitant]

REACTIONS (3)
  - Pulmonary embolism [Fatal]
  - Deep vein thrombosis [Fatal]
  - Hepatic cirrhosis [Fatal]
